FAERS Safety Report 8612741-0 (Version None)
Quarter: 2012Q3

REPORT INFORMATION
  Report Type: 
  Country: None (occurrence: None)
  Receive Date: 20120822
  Receipt Date: 20110824
  Transmission Date: 20120928
  Serious: No
  Sender: FDA-Public Use
  Company Number: US-ASTRAZENECA-2011SE51121

PATIENT
  Age: 46 Year
  Sex: Male

DRUGS (11)
  1. SYMBICORT [Suspect]
     Dosage: 160/4.5 MCG
     Route: 055
  2. NEXIUM [Concomitant]
  3. ULTRAM [Concomitant]
  4. SEROQUEL [Concomitant]
  5. CRESTOR [Concomitant]
  6. VITAMIN D [Concomitant]
  7. NIFEREX [Concomitant]
  8. TRICOR [Concomitant]
  9. SERTRALINE HYDROCHLORIDE [Concomitant]
  10. PROVENTIL [Concomitant]
  11. VASOTEC [Concomitant]

REACTIONS (9)
  - GASTROOESOPHAGEAL REFLUX DISEASE [None]
  - PAIN IN EXTREMITY [None]
  - BACK PAIN [None]
  - VITAMIN D DEFICIENCY [None]
  - BIPOLAR DISORDER [None]
  - BLOOD CHOLESTEROL INCREASED [None]
  - ESSENTIAL HYPERTENSION [None]
  - DEPRESSION [None]
  - ANAEMIA [None]
